FAERS Safety Report 10432625 (Version 1)
Quarter: 2014Q3

REPORT INFORMATION
  Report Type: Spontaneous
  Country: US (occurrence: None)
  Receive Date: 20140904
  Receipt Date: 20140904
  Transmission Date: 20150326
  Serious: No
  Sender: FDA-Public Use
  Company Number: None

PATIENT
  Age: 16 Year
  Sex: Male

DRUGS (1)
  1. KEPPRA XR [Suspect]
     Active Substance: LEVETIRACETAM
     Indication: EPILEPSY
     Dosage: TT (2) ?QD?PO
     Route: 048
     Dates: start: 2011

REACTIONS (2)
  - Abnormal behaviour [None]
  - Emotional disorder [None]

NARRATIVE: CASE EVENT DATE: 20110311
